FAERS Safety Report 23602016 (Version 1)
Quarter: 2024Q1

REPORT INFORMATION
  Report Type: Spontaneous
  Country: US (occurrence: None)
  Receive Date: 20240306
  Receipt Date: 20240306
  Transmission Date: 20240409
  Serious: Yes (Hospitalization)
  Sender: FDA-Public Use
  Company Number: None

PATIENT
  Age: 42 Year
  Sex: Female

DRUGS (1)
  1. OXBRYTA [Suspect]
     Active Substance: VOXELOTOR
     Indication: Sickle cell disease
     Dosage: 1000MG ONCE DAILY BY MOUTH
     Route: 048
     Dates: start: 202111

REACTIONS (7)
  - Blood potassium increased [None]
  - Dehydration [None]
  - Swelling face [None]
  - Therapy change [None]
  - Eye irritation [None]
  - Eyelid margin crusting [None]
  - Eye pruritus [None]

NARRATIVE: CASE EVENT DATE: 20240228
